FAERS Safety Report 16141133 (Version 3)
Quarter: 2019Q2

REPORT INFORMATION
  Report Type: Spontaneous
  Country: US (occurrence: US)
  Receive Date: 20190401
  Receipt Date: 20190528
  Transmission Date: 20190711
  Serious: No
  Sender: FDA-Public Use
  Company Number: US-PFIZER INC-2019134401

PATIENT
  Age: 62 Year
  Sex: Female

DRUGS (9)
  1. IBRANCE [Suspect]
     Active Substance: PALBOCICLIB
     Indication: BREAST CANCER METASTATIC
     Dosage: UNK
     Dates: start: 201810
  2. ZOMETA [Suspect]
     Active Substance: ZOLEDRONIC ACID
     Dosage: 4 MG, UNK (4 MG IN SODIUM CHLORIDE EVERY 3 MONTHS)
     Dates: start: 20181009
  3. ADVIL [IBUPROFEN] [Concomitant]
     Active Substance: IBUPROFEN
     Dosage: UNK, 2X/DAY (I TAKE 2 ADVIL PER DAY)
  4. FEMARA [Suspect]
     Active Substance: LETROZOLE
     Dosage: UNK
  5. ADVIL [IBUPROFEN] [Concomitant]
     Active Substance: IBUPROFEN
     Indication: DISCOMFORT
     Dosage: UNK (2 ADVIL A DAY AN HOUR OR 2 AFTER MY IBRANCE DOSE)
  6. LETROZOLE. [Suspect]
     Active Substance: LETROZOLE
     Dosage: 2.5 MG, 1X/DAY
     Dates: start: 20181021, end: 20190506
  7. IBRANCE [Suspect]
     Active Substance: PALBOCICLIB
     Dosage: 75 MG, CYCLIC (3 WEEK ON- 1 WEEK OFF)
     Dates: start: 20181021, end: 20190506
  8. LETROZOLE. [Suspect]
     Active Substance: LETROZOLE
     Indication: BREAST CANCER METASTATIC
     Dosage: UNK
     Dates: start: 201810
  9. ZOMETA [Suspect]
     Active Substance: ZOLEDRONIC ACID
     Indication: BREAST CANCER METASTATIC
     Dosage: UNK
     Dates: start: 201810

REACTIONS (11)
  - Mobility decreased [Unknown]
  - Decreased appetite [Unknown]
  - Alopecia [Unknown]
  - Nausea [Unknown]
  - Haemoglobin decreased [Unknown]
  - Vomiting [Unknown]
  - Apathy [Unknown]
  - Musculoskeletal discomfort [Unknown]
  - Frustration tolerance decreased [Unknown]
  - Constipation [Unknown]
  - White blood cell count decreased [Unknown]
